FAERS Safety Report 14653187 (Version 2)
Quarter: 2018Q1

REPORT INFORMATION
  Report Type: Spontaneous
  Country: AT (occurrence: AT)
  Receive Date: 20180319
  Receipt Date: 20180328
  Transmission Date: 20180509
  Serious: Yes (Hospitalization, Other)
  Sender: FDA-Public Use
  Company Number: AT-ROCHE-2088726

PATIENT
  Age: 63 Year
  Sex: Male
  Weight: 103 kg

DRUGS (5)
  1. PASPERTIN (AUSTRIA) [Concomitant]
     Indication: NAUSEA
     Dosage: 1-1-1
     Route: 048
  2. TARGIN RETARD [Concomitant]
     Indication: PAIN
     Dosage: 40/20 MG?1-0-0-1
     Route: 048
  3. TECENTRIQ [Suspect]
     Active Substance: ATEZOLIZUMAB
     Indication: NON-SMALL CELL LUNG CANCER
     Route: 042
     Dates: start: 20171113, end: 20180206
  4. SPIOLTO RESPIMAT [Concomitant]
     Active Substance: OLODATEROL HYDROCHLORIDE\TIOTROPIUM BROMIDE MONOHYDRATE
     Indication: CHRONIC OBSTRUCTIVE PULMONARY DISEASE
     Dosage: 2/0/0
     Route: 055
  5. XARELTO [Concomitant]
     Active Substance: RIVAROXABAN
     Indication: THROMBOSIS
     Dosage: 1-0-0
     Route: 048

REACTIONS (2)
  - Acute kidney injury [Recovering/Resolving]
  - Nephritis [Unknown]

NARRATIVE: CASE EVENT DATE: 20180221
